FAERS Safety Report 23782038 (Version 2)
Quarter: 2024Q2

REPORT INFORMATION
  Report Type: Spontaneous
  Country: RS (occurrence: RS)
  Receive Date: 20240425
  Receipt Date: 20240517
  Transmission Date: 20240715
  Serious: Yes (Other)
  Sender: FDA-Public Use
  Company Number: RS-Merck Healthcare KGaA-2024021263

PATIENT
  Age: 59 Year
  Sex: Female

DRUGS (2)
  1. GLUCOPHAGE XR [Suspect]
     Active Substance: METFORMIN HYDROCHLORIDE
     Indication: Blood glucose increased
     Dosage: GLUCOPHAGE XR 750 (UNIT UNSPECIFIED)
     Dates: start: 202311
  2. ROSUVASTATIN [Suspect]
     Active Substance: ROSUVASTATIN
     Indication: Blood cholesterol increased
     Dates: start: 202311

REACTIONS (3)
  - Gastrointestinal candidiasis [Recovered/Resolved]
  - Cholelithiasis [Unknown]
  - Cholecystitis chronic [Unknown]

NARRATIVE: CASE EVENT DATE: 20240101
